FAERS Safety Report 9647911 (Version 2)
Quarter: 2013Q4

REPORT INFORMATION
  Report Type: Spontaneous
  Country: US (occurrence: US)
  Receive Date: 20131028
  Receipt Date: 20131209
  Transmission Date: 20140711
  Serious: No
  Sender: FDA-Public Use
  Company Number: US-PFIZER INC-2013305193

PATIENT
  Age: 50 Year
  Sex: Female
  Weight: 68.03 kg

DRUGS (6)
  1. NEURONTIN [Suspect]
     Indication: NEUROPATHY PERIPHERAL
     Dosage: UNK
     Dates: start: 2001, end: 2002
  2. GABAPENTIN [Suspect]
     Indication: NEUROPATHY PERIPHERAL
     Dosage: UNK
  3. HYDROCODONE [Suspect]
     Indication: PAIN
     Dosage: 7.5 MG, AS NEEDED
  4. ULTRAM [Suspect]
     Indication: PAIN
     Dosage: UNK
  5. LYRICA [Concomitant]
     Indication: NEUROPATHY PERIPHERAL
     Dosage: 150 MG, 3X/DAY
  6. SPIRONOLACTONE [Concomitant]
     Indication: CARDIAC FAILURE CONGESTIVE
     Dosage: UNK

REACTIONS (6)
  - Off label use [Unknown]
  - Drug ineffective for unapproved indication [Unknown]
  - Dizziness [Unknown]
  - Gastroenteritis viral [Unknown]
  - Tremor [Unknown]
  - Vomiting [Unknown]
